FAERS Safety Report 6237910-9 (Version None)
Quarter: 2009Q2

REPORT INFORMATION
  Report Type: 
  Country: None (occurrence: None)
  Receive Date: 20090621
  Receipt Date: 20090608
  Transmission Date: 20091009
  Serious: Yes (Death, Hospitalization)
  Sender: FDA-Public Use
  Company Number: GB-BAUSCH-2009BL002911

PATIENT
  Age: 51 Year
  Sex: Female

DRUGS (4)
  1. PREDNISOLONE [Suspect]
     Indication: B-CELL LYMPHOMA STAGE III
  2. CYCLOPHOSPHAMIDE [Suspect]
     Indication: B-CELL LYMPHOMA STAGE III
  3. ADRIAMYCIN RDF [Suspect]
     Indication: B-CELL LYMPHOMA STAGE III
  4. VINCRISTINE [Suspect]
     Indication: B-CELL LYMPHOMA STAGE III

REACTIONS (7)
  - ATRIAL FIBRILLATION [None]
  - CANDIDIASIS [None]
  - HYPOTENSION [None]
  - JAUNDICE [None]
  - NEUTROPENIC SEPSIS [None]
  - PNEUMONIA [None]
  - STAPHYLOCOCCAL INFECTION [None]
